FAERS Safety Report 9060139 (Version 1)
Quarter: 2013Q1

REPORT INFORMATION
  Report Type: Spontaneous
  Country: US (occurrence: None)
  Receive Date: 20130118
  Receipt Date: 20130118
  Transmission Date: 20140127
  Serious: Yes (Death)
  Sender: FDA-Public Use
  Company Number: AUR-APL-2013-00197

PATIENT
  Age: 28 Year
  Sex: Male

DRUGS (3)
  1. FLUOXETINE [Suspect]
     Indication: PRODUCT USED FOR UNKNOWN INDICATION
  2. METHADONE [Suspect]
     Route: 048
  3. ACETAMINOPHEN\HYDROCODONE [Suspect]

REACTIONS (2)
  - Drug abuse [None]
  - Toxicity to various agents [None]
